FAERS Safety Report 7308839-X (Version None)
Quarter: 2011Q1

REPORT INFORMATION
  Report Type: 
  Country: None (occurrence: None)
  Receive Date: 20110210
  Receipt Date: 20110120
  Transmission Date: 20110831
  Serious: Yes (Death)
  Sender: FDA-Public Use
  Company Number: AE11-015-53

PATIENT
  Age: 42 Year
  Sex: Female

DRUGS (5)
  1. LORCET-HD [Suspect]
  2. NIFEDIPINE [Suspect]
  3. HYDROCHLOROTHIAZIDE/TELMISARTAN [Suspect]
  4. MONTELUKAST SODIUM [Suspect]
  5. QUETIAPINE [Suspect]

REACTIONS (2)
  - MULTIPLE DRUG OVERDOSE INTENTIONAL [None]
  - COMPLETED SUICIDE [None]
